FAERS Safety Report 5046871-X (Version None)
Quarter: 2006Q2

REPORT INFORMATION
  Report Type: 
  Country: None (occurrence: None)
  Receive Date: 20060601
  Receipt Date: 20060213
  Transmission Date: 20061013
  Serious: No
  Sender: FDA-Public Use
  Company Number: 2006PV008612

PATIENT
  Age: 77 Year
  Sex: Male
  Weight: 95.2554 kg

DRUGS (3)
  1. BYETTA [Suspect]
     Indication: DRUG USE FOR UNKNOWN INDICATION
     Dosage: 5 MCG;BID;SC
     Route: 058
     Dates: start: 20060202
  2. LANTUS [Concomitant]
  3. GLYBURIDE [Concomitant]

REACTIONS (1)
  - SOMNOLENCE [None]
